FAERS Safety Report 5504821-3 (Version None)
Quarter: 2007Q4

REPORT INFORMATION
  Report Type: 
  Country: None (occurrence: None)
  Receive Date: 20071031
  Receipt Date: 20070920
  Transmission Date: 20080405
  Serious: Yes (Other)
  Sender: FDA-Public Use
  Company Number: 20070204

PATIENT
  Age: 53 Year
  Sex: Female
  Weight: 62.5964 kg

DRUGS (1)
  1. METHYLENE BLUE INJECTION [Suspect]
     Indication: LYMPHADENOPATHY
     Dosage: 10 ML X 1; SUBCUTANEOUS
     Route: 058
     Dates: start: 20070622, end: 20070622

REACTIONS (1)
  - INJECTION SITE NECROSIS [None]
